FAERS Safety Report 9684692 (Version 2)
Quarter: 2013Q4

REPORT INFORMATION
  Report Type: Spontaneous
  Country: US (occurrence: None)
  Receive Date: 20131108
  Receipt Date: 20131120
  Transmission Date: 20140711
  Serious: Yes (Hospitalization)
  Sender: FDA-Public Use
  Company Number: 2013P1020587

PATIENT
  Age: 66 Year
  Sex: Female

DRUGS (14)
  1. INFUMORPH [Suspect]
     Indication: COMPLEX REGIONAL PAIN SYNDROME
  2. INFUMORPH [Suspect]
     Indication: SPINAL PAIN
  3. XANAX [Concomitant]
  4. ELAVIL [Concomitant]
  5. CARDURA [Concomitant]
  6. NEXIUM [Concomitant]
  7. DILAUDID [Concomitant]
  8. KEPPRA [Concomitant]
  9. SYNTHROID [Concomitant]
  10. MIRAPEX [Concomitant]
  11. LYRICA [Concomitant]
  12. ZOLOFT [Concomitant]
  13. PRIALT [Suspect]
  14. MORPHINE [Suspect]

REACTIONS (34)
  - Device breakage [None]
  - Drug withdrawal syndrome [None]
  - Nausea [None]
  - Vomiting [None]
  - Abdominal pain [None]
  - Mental status changes [None]
  - Device malfunction [None]
  - Hallucination [None]
  - Hypophagia [None]
  - Insomnia [None]
  - Abnormal behaviour [None]
  - Confusional state [None]
  - Disturbance in attention [None]
  - Agitation [None]
  - Cognitive disorder [None]
  - Memory impairment [None]
  - Emotional distress [None]
  - Anxiety [None]
  - Dysarthria [None]
  - Atelectasis [None]
  - Acquired diaphragmatic eventration [None]
  - Lung infiltration [None]
  - Dyspnoea [None]
  - Respiratory tract congestion [None]
  - Device battery issue [None]
  - Wheezing [None]
  - Asthenia [None]
  - Pain [None]
  - Suicidal ideation [None]
  - Activities of daily living impaired [None]
  - Pressure of speech [None]
  - Device occlusion [None]
  - Lung disorder [None]
  - Confusion postoperative [None]
